FAERS Safety Report 15259980 (Version 1)
Quarter: 2018Q3

REPORT INFORMATION
  Report Type: Spontaneous
  Country: US (occurrence: US)
  Receive Date: 20180719
  Receipt Date: 20180719
  Transmission Date: 20181010
  Serious: Yes (Other)
  Sender: FDA-Public Use
  Company Number: None

PATIENT
  Age: 53 Year
  Sex: Male
  Weight: 96.75 kg

DRUGS (1)
  1. CIPROFLAXCIN [Suspect]
     Active Substance: CIPROFLOXACIN
     Indication: BIOPSY PROSTATE
     Dosage: ?          QUANTITY:1 TABLET(S);?
     Route: 048
     Dates: start: 20180603, end: 20180604

REACTIONS (10)
  - Tendonitis [None]
  - Joint swelling [None]
  - Paraesthesia [None]
  - Dizziness [None]
  - Therapy cessation [None]
  - Joint effusion [None]
  - Arthralgia [None]
  - Peripheral swelling [None]
  - Tinnitus [None]
  - Insomnia [None]

NARRATIVE: CASE EVENT DATE: 20180604
